FAERS Safety Report 7493248-3 (Version None)
Quarter: 2011Q2

REPORT INFORMATION
  Report Type: 
  Country: None (occurrence: None)
  Receive Date: 20110513
  Receipt Date: 20110428
  Transmission Date: 20111010
  Serious: Yes (Life-Threatening, Other)
  Sender: FDA-Public Use
  Company Number: 2011AT0000149

PATIENT
  Sex: Male

DRUGS (2)
  1. EDEX [Suspect]
     Indication: ERECTILE DYSFUNCTION
     Dosage: 20 UG; TIW; ICAN
  2. INSULIN [Concomitant]

REACTIONS (2)
  - OVERDOSE [None]
  - SUICIDE ATTEMPT [None]
